FAERS Safety Report 8115131-2 (Version None)
Quarter: 2012Q1

REPORT INFORMATION
  Report Type: 
  Country: None (occurrence: None)
  Receive Date: 20120201
  Receipt Date: 20120125
  Transmission Date: 20120608
  Serious: Yes (Other)
  Sender: FDA-Public Use
  Company Number: 2011SP054002

PATIENT
  Sex: Male

DRUGS (3)
  1. PEG-INTRON [Suspect]
     Indication: HEPATITIS C
     Dosage: 120 MCG;QD;UNK
     Dates: start: 20111113
  2. VICTRELIS [Suspect]
     Indication: HEPATITIS C
     Dates: start: 20111211
  3. RIBAVIRIN [Suspect]
     Indication: HEPATITIS C
     Dates: start: 20111113

REACTIONS (5)
  - DRUG DOSE OMISSION [None]
  - DEVICE MALFUNCTION [None]
  - NAUSEA [None]
  - TRANSFUSION [None]
  - PRODUCT QUALITY ISSUE [None]
